FAERS Safety Report 25447524 (Version 1)
Quarter: 2025Q2

REPORT INFORMATION
  Report Type: Report from Study
  Country: DE (occurrence: DE)
  Receive Date: 20250617
  Receipt Date: 20250617
  Transmission Date: 20250716
  Serious: Yes (Hospitalization, Other)
  Sender: TORRENT PHARMA INC.
  Company Number: None

PATIENT
  Age: 5 Decade
  Sex: Female

DRUGS (7)
  1. CELECOXIB [Suspect]
     Active Substance: CELECOXIB
     Indication: Ankylosing spondylitis
     Route: 065
     Dates: start: 20190101, end: 20190501
  2. INFLECTRA [Suspect]
     Active Substance: INFLIXIMAB-DYYB
     Indication: Ankylosing spondylitis
     Route: 065
     Dates: start: 20220807
  3. METHOTREXATE [Suspect]
     Active Substance: METHOTREXATE
     Indication: Ankylosing spondylitis
     Route: 048
     Dates: start: 20120101
  4. NAPROXEN [Suspect]
     Active Substance: NAPROXEN
     Indication: Axial spondyloarthritis
     Dosage: QD- 7 DAYS PER WEEK
     Route: 065
     Dates: start: 20210608, end: 20220715
  5. INFLIXIMAB [Suspect]
     Active Substance: INFLIXIMAB
     Indication: Ankylosing spondylitis
     Dosage: FOR 6.852 YEARS
     Route: 048
     Dates: start: 20120101, end: 20181105
  6. SIMPONI [Suspect]
     Active Substance: GOLIMUMAB
     Indication: Ankylosing spondylitis
     Dosage: FOR 2.822 YEARS
     Route: 058
     Dates: start: 20180226, end: 20191010
  7. ACEMETACIN [Concomitant]
     Active Substance: ACEMETACIN
     Indication: Product used for unknown indication
     Route: 065
     Dates: start: 20181105, end: 20181108

REACTIONS (17)
  - Polyarthritis [Unknown]
  - Multiple sclerosis [Unknown]
  - Osteochondrosis [Recovered/Resolved]
  - Intervertebral disc protrusion [Recovered/Resolved]
  - Rotator cuff syndrome [Recovered/Resolved]
  - Postoperative adhesion [Recovered/Resolved]
  - Hypertonic bladder [Unknown]
  - Axial spondyloarthritis [Recovered/Resolved]
  - Residual urine volume increased [Recovered/Resolved]
  - Back pain [Recovered/Resolved]
  - Ovarian cyst [Unknown]
  - Urinary tract infection [Unknown]
  - Laryngitis [Unknown]
  - Upper respiratory tract infection [Unknown]
  - Gastritis [Unknown]
  - Functional gastrointestinal disorder [Unknown]
  - Rash [Unknown]

NARRATIVE: CASE EVENT DATE: 20190304
